FAERS Safety Report 26063157 (Version 1)
Quarter: 2025Q4

REPORT INFORMATION
  Report Type: Spontaneous
  Country: EU (occurrence: EU)
  Receive Date: 20251119
  Receipt Date: 20251119
  Transmission Date: 20260117
  Serious: Yes (Hospitalization, Other)
  Sender: AUROBINDO
  Company Number: EU-AFSSAPS-GR2025001728

PATIENT
  Age: 80 Year
  Sex: Female
  Weight: 58 kg

DRUGS (1)
  1. OLANZAPINE [Suspect]
     Active Substance: OLANZAPINE
     Indication: Aggression
     Dosage: 10 MILLIGRAM, ONCE A DAY
     Dates: start: 20250909, end: 20250923

REACTIONS (1)
  - Adult failure to thrive [Not Recovered/Not Resolved]

NARRATIVE: CASE EVENT DATE: 20250910
